FAERS Safety Report 7637910-8 (Version None)
Quarter: 2011Q3

REPORT INFORMATION
  Report Type: 
  Country: None (occurrence: None)
  Receive Date: 20110720
  Receipt Date: 20110713
  Transmission Date: 20111222
  Serious: Yes (Other)
  Sender: FDA-Public Use
  Company Number: 201110737

PATIENT
  Sex: Female

DRUGS (1)
  1. LIORESAL [Suspect]
     Indication: MUSCLE SPASTICITY
     Dosage: DAILY,INTRATHECAL
     Route: 037

REACTIONS (4)
  - PATIENT-DEVICE INCOMPATIBILITY [None]
  - IMPLANT SITE EFFUSION [None]
  - DEVICE DISLOCATION [None]
  - DEVICE COMPONENT ISSUE [None]
